FAERS Safety Report 12895049 (Version 1)
Quarter: 2016Q4

REPORT INFORMATION
  Report Type: Spontaneous
  Country: US (occurrence: US)
  Receive Date: 20161029
  Receipt Date: 20161029
  Transmission Date: 20170207
  Serious: No
  Sender: FDA-Public Use
  Company Number: US-009507513-1610USA011066

PATIENT
  Age: 16 Year
  Sex: Female
  Weight: 90.7 kg

DRUGS (2)
  1. INTUNIV [Concomitant]
     Active Substance: GUANFACINE HYDROCHLORIDE
  2. NEXPLANON [Suspect]
     Active Substance: ETONOGESTREL
     Indication: MENSTRUAL CYCLE MANAGEMENT
     Dosage: 1 IMPLANT, EVERY 3 YEARS, LEFT ARM
     Route: 059
     Dates: start: 20150630

REACTIONS (2)
  - Menstruation irregular [Unknown]
  - Product use issue [Unknown]

NARRATIVE: CASE EVENT DATE: 20150630
